FAERS Safety Report 4942546-3 (Version None)
Quarter: 2006Q1

REPORT INFORMATION
  Report Type: 
  Country: None (occurrence: None)
  Receive Date: 20060313
  Receipt Date: 20050412
  Transmission Date: 20060701
  Serious: No
  Sender: FDA-Public Use
  Company Number: US-GLAXOSMITHKLINE-A0553747A

PATIENT
  Age: 49 Year
  Sex: Female

DRUGS (4)
  1. NICORETTE (MINT) [Suspect]
     Dates: start: 20050304, end: 20050307
  2. TEGRETOL [Concomitant]
  3. EFFEXOR XR [Concomitant]
  4. SEROQUEL [Concomitant]

REACTIONS (2)
  - DIZZINESS [None]
  - FEELING JITTERY [None]
